FAERS Safety Report 7659282-5 (Version None)
Quarter: 2011Q3

REPORT INFORMATION
  Report Type: 
  Country: None (occurrence: None)
  Receive Date: 20110802
  Receipt Date: 20110723
  Transmission Date: 20111222
  Serious: Yes (Other)
  Sender: FDA-Public Use
  Company Number: 2010004965

PATIENT
  Age: 54 Year
  Sex: Female
  Weight: 55 kg

DRUGS (5)
  1. FOLIC ACID [Concomitant]
  2. CALCIUM (CALCIUM) [Concomitant]
  3. TARCEVA [Suspect]
     Indication: LUNG CARCINOMA CELL TYPE UNSPECIFIED STAGE 0
     Dosage: 150 MG, UID/QD, ORAL
     Route: 048
     Dates: start: 20101103
  4. DOXYCYCLINE HYCLATE (DOXYCYCLINE HYCLATE) [Concomitant]
  5. MULTIVITAMIN [Concomitant]

REACTIONS (5)
  - CHAPPED LIPS [None]
  - ABDOMINAL OPERATION [None]
  - STOMATITIS [None]
  - RASH [None]
  - INCISION SITE PRURITUS [None]
